FAERS Safety Report 6577693-6 (Version None)
Quarter: 2010Q1

REPORT INFORMATION
  Report Type: 
  Country: None (occurrence: None)
  Receive Date: 20100211
  Receipt Date: 20100210
  Transmission Date: 20100710
  Serious: Yes (Hospitalization)
  Sender: FDA-Public Use
  Company Number: PHHO2003GB09674

PATIENT
  Sex: Male
  Weight: 76 kg

DRUGS (13)
  1. STARLIX [Suspect]
     Indication: GLUCOSE TOLERANCE IMPAIRED
     Dosage: LEVEL 1
     Route: 048
     Dates: start: 20030311
  2. STARLIX [Suspect]
     Dosage: LEVEL 2
     Route: 048
  3. PLACEBO [Suspect]
     Dosage: LEVEL 1
     Route: 048
     Dates: start: 20030311
  4. PLACEBO [Suspect]
     Dosage: LEVEL 2
     Route: 048
  5. FRUSEMIDE [Concomitant]
     Indication: CARDIAC VALVE DISEASE
  6. LANSOPRAZOLE [Concomitant]
     Indication: GASTROOESOPHAGEAL REFLUX DISEASE
  7. ATENOLOL [Concomitant]
     Indication: ATRIAL FIBRILLATION
  8. WARFARIN SODIUM [Concomitant]
     Indication: PROPHYLAXIS
  9. CO-CODAMOL [Concomitant]
     Indication: OSTEOARTHRITIS
  10. MOVELAT [Concomitant]
     Indication: OSTEOARTHRITIS
  11. METOCLOPRAMIDE [Concomitant]
     Indication: VOMITING
  12. GAVISCON [Concomitant]
     Indication: GASTROOESOPHAGEAL REFLUX DISEASE
  13. TRAXAM [Concomitant]
     Indication: OSTEOARTHRITIS

REACTIONS (3)
  - ABDOMINAL PAIN [None]
  - PANCREATITIS ACUTE [None]
  - VOMITING [None]
